FAERS Safety Report 8917590 (Version 2)
Quarter: 2013Q2

REPORT INFORMATION
  Report Type: Spontaneous
  Country: US (occurrence: US)
  Receive Date: 20121119
  Receipt Date: 20130628
  Transmission Date: 20140414
  Serious: Yes (Death, Hospitalization, Other)
  Sender: FDA-Public Use
  Company Number: US-009507513-1105USA01167

PATIENT
  Sex: Female

DRUGS (8)
  1. FOSAMAX [Suspect]
     Indication: OSTEOPOROSIS
     Route: 048
     Dates: start: 20000421, end: 20001221
  2. FOSAMAX [Suspect]
     Dosage: 70 MG, UNK
     Route: 048
     Dates: start: 20060103, end: 20071203
  3. FOSAMAX [Suspect]
     Indication: OSTEOPOROSIS
     Dosage: 70 MG, UNK
     Route: 048
     Dates: start: 20080318, end: 20090429
  4. MK-9278 [Concomitant]
     Route: 048
  5. CALCIUM (UNSPECIFIED) [Concomitant]
  6. CHONDROITIN SULFATE SODIUM (+) GLUCOSAMINE SULFATE [Concomitant]
     Indication: OSTEOARTHRITIS
     Dates: end: 201012
  7. TRAVATAN [Concomitant]
     Indication: INTRAOCULAR PRESSURE TEST
     Dates: end: 201012
  8. CITALOPRAM [Concomitant]
     Indication: DEPRESSION
     Dates: end: 201012

REACTIONS (70)
  - Open reduction of fracture [Unknown]
  - Device failure [Unknown]
  - Medical device removal [Unknown]
  - Bone operation [Unknown]
  - Shock haemorrhagic [Fatal]
  - Circulatory collapse [Fatal]
  - Respiratory failure [Unknown]
  - Disseminated intravascular coagulation [Unknown]
  - Haematoma [Unknown]
  - Lactic acidosis [Unknown]
  - Pneumothorax [Unknown]
  - Osteonecrosis [Unknown]
  - Bladder repair [Unknown]
  - Deafness neurosensory [Unknown]
  - Procedural haemorrhage [Unknown]
  - Fall [Unknown]
  - Neoplasm [Unknown]
  - Skin cancer [Unknown]
  - Femur fracture [Unknown]
  - Bone disorder [Unknown]
  - Extraskeletal ossification [Unknown]
  - Hypercholesterolaemia [Unknown]
  - Hyperkeratosis [Unknown]
  - Essential hypertension [Unknown]
  - Fall [Unknown]
  - Injury [Unknown]
  - Hypotension [Unknown]
  - Medical device complication [Unknown]
  - Head injury [Unknown]
  - Nerve compression [Unknown]
  - Syncope [Unknown]
  - Carpal tunnel syndrome [Unknown]
  - Radius fracture [Unknown]
  - Sciatica [Unknown]
  - Iron deficiency anaemia [Unknown]
  - Peripheral vascular disorder [Unknown]
  - Skin disorder [Unknown]
  - Hepatic function abnormal [Unknown]
  - Cataract nuclear [Unknown]
  - Large intestine polyp [Unknown]
  - Cellulitis [Unknown]
  - Urge incontinence [Unknown]
  - Glaucoma [Unknown]
  - Contusion [Unknown]
  - Osteoarthritis [Unknown]
  - Pain [Unknown]
  - Radius fracture [Unknown]
  - Ulna fracture [Unknown]
  - Rib fracture [Unknown]
  - Arteriosclerosis [Unknown]
  - Hysterectomy [Unknown]
  - Pleural effusion [Unknown]
  - Open angle glaucoma [Unknown]
  - Anxiety [Unknown]
  - Breast calcifications [Unknown]
  - Diverticulum [Unknown]
  - Venous insufficiency [Unknown]
  - Wound [Unknown]
  - Body height decreased [Unknown]
  - Bone density decreased [Unknown]
  - Depression [Unknown]
  - Hallucination [Recovered/Resolved]
  - Urinary tract infection [Unknown]
  - Haemorrhoidal haemorrhage [Unknown]
  - Back pain [Unknown]
  - Dysphagia [Unknown]
  - Oedema peripheral [Unknown]
  - Gastrooesophageal reflux disease [Unknown]
  - Oesophageal stenosis [Unknown]
  - Constipation [Unknown]
